FAERS Safety Report 6261651-5 (Version None)
Quarter: 2009Q3

REPORT INFORMATION
  Report Type: 
  Country: None (occurrence: None)
  Receive Date: 20090709
  Receipt Date: 20090706
  Transmission Date: 20100115
  Serious: Yes (Death)
  Sender: FDA-Public Use
  Company Number: US-ASTRAZENECA-2009UW14226

PATIENT
  Age: 58 Year
  Sex: Male

DRUGS (6)
  1. SEROQUEL [Suspect]
     Route: 048
     Dates: start: 20070725
  2. SEROQUEL [Suspect]
     Route: 048
     Dates: start: 20081205
  3. EFFEXOR [Suspect]
  4. XANAX [Suspect]
  5. HUMALOG [Concomitant]
  6. NORVASC [Concomitant]

REACTIONS (1)
  - TYPE 1 DIABETES MELLITUS [None]
